FAERS Safety Report 4890030-8 (Version None)
Quarter: 2006Q1

REPORT INFORMATION
  Report Type: 
  Country: None (occurrence: None)
  Receive Date: 20060123
  Receipt Date: 20060110
  Transmission Date: 20060701
  Serious: Yes (Other)
  Sender: FDA-Public Use
  Company Number: 2006005306

PATIENT
  Sex: Female
  Weight: 86.1834 kg

DRUGS (1)
  1. BENADRYL [Suspect]
     Indication: HYPERSENSITIVITY
     Dosage: ONCE  FASTMELT, TWICE, ORAL
     Route: 048
     Dates: start: 20040101, end: 20040101

REACTIONS (1)
  - AMNESIA [None]
